FAERS Safety Report 19060122 (Version 1)
Quarter: 2021Q1

REPORT INFORMATION
  Report Type: Spontaneous
  Country: US (occurrence: US)
  Receive Date: 20210325
  Receipt Date: 20210325
  Transmission Date: 20210420
  Serious: Yes (Other)
  Sender: FDA-Public Use
  Company Number: US-GLAXOSMITHKLINE-US2021GSK068634

PATIENT
  Sex: Female

DRUGS (4)
  1. ZANTAC [Suspect]
     Active Substance: RANITIDINE HYDROCHLORIDE
     Indication: GASTRIC ULCER
     Dosage: 150 MG, DAILY FOR SIX MONTHS AND THEN OCCASIONAL WHEN NEEDED
     Route: 065
     Dates: start: 199506, end: 201909
  2. RANITIDINE. [Suspect]
     Active Substance: RANITIDINE
     Indication: GASTRIC ULCER
     Dosage: 150 MG, OCCASIONAL, WITH FLARE?UPS
     Route: 065
     Dates: start: 200606, end: 201909
  3. RANITIDINE CAPSULE [Suspect]
     Active Substance: RANITIDINE
     Indication: GASTRIC ULCER
     Dosage: 150 MG, OCCASIONAL, WITH FLARE?UPS
     Route: 065
     Dates: start: 200606, end: 201909
  4. ZANTAC [Suspect]
     Active Substance: RANITIDINE HYDROCHLORIDE
     Indication: GASTRIC ULCER
     Dosage: 150 MG, DAILY FOR SIX MONTHS AND THEN OCCASIONAL WHEN NEEDED
     Route: 065
     Dates: start: 199506, end: 201909

REACTIONS (1)
  - Breast cancer [Unknown]
